FAERS Safety Report 9154297 (Version 1)
Quarter: 2013Q1

REPORT INFORMATION
  Report Type: Spontaneous
  Country: US (occurrence: US)
  Receive Date: 20130311
  Receipt Date: 20130311
  Transmission Date: 20140127
  Serious: Yes (Hospitalization)
  Sender: FDA-Public Use
  Company Number: US-BAYER-2013-027698

PATIENT
  Age: 45 Year
  Sex: Female

DRUGS (14)
  1. YAZ [Suspect]
  2. YASMIN [Suspect]
     Indication: ACNE
  3. GIANVI [Suspect]
  4. REQUIP [Concomitant]
  5. QUETIAPINE [Concomitant]
  6. ADDERALL [Concomitant]
     Indication: ATTENTION DEFICIT/HYPERACTIVITY DISORDER
  7. SPIRONOLACTONE [Concomitant]
     Indication: ACNE
  8. TRAMADOL [Concomitant]
  9. PROTONIX [Concomitant]
  10. AUGMENTIN [Concomitant]
  11. OXYCODONE [Concomitant]
     Indication: BACK PAIN
  12. ALPRAZOLAM [Concomitant]
  13. VICODIN [Concomitant]
     Indication: BACK PAIN
  14. VICODIN [Concomitant]
     Indication: NECK PAIN

REACTIONS (3)
  - Pulmonary embolism [Recovered/Resolved]
  - Deep vein thrombosis [None]
  - Pulmonary embolism [None]
